FAERS Safety Report 7398424-6 (Version None)
Quarter: 2011Q2

REPORT INFORMATION
  Report Type: 
  Country: None (occurrence: None)
  Receive Date: 20110407
  Receipt Date: 20110325
  Transmission Date: 20111010
  Serious: Yes (Hospitalization)
  Sender: FDA-Public Use
  Company Number: JP-AMGEN-JPNSP2011016921

PATIENT
  Age: 78 Year
  Sex: Male

DRUGS (7)
  1. ENBREL [Suspect]
     Indication: RHEUMATOID ARTHRITIS
     Dosage: 25 MG, 2X/WEEK
     Route: 058
     Dates: start: 20080404, end: 20090912
  2. RHEUMATREX [Concomitant]
     Dosage: 4MG/WEEK
     Dates: start: 20090924, end: 20110224
  3. RHEUMATREX [Concomitant]
     Indication: RHEUMATOID ARTHRITIS
     Dosage: 2 MG, 2X/WEEK
     Route: 048
     Dates: start: 20080110, end: 20090914
  4. ETODOLAC [Concomitant]
     Dosage: 2 TABLETS/DAY
     Route: 048
     Dates: end: 20110224
  5. MUCOSTA [Concomitant]
     Dosage: 2 TABLETS/DAY
     Route: 048
     Dates: end: 20110224
  6. ENBREL [Suspect]
     Dosage: 25 MG, WEEKLY
     Route: 058
     Dates: start: 20091002, end: 20110224
  7. PREDONINE                          /00016201/ [Concomitant]
     Dosage: 1 TABLET/DAY
     Dates: start: 20071024

REACTIONS (2)
  - SPLENOMEGALY [None]
  - LYMPHOMA [None]
